FAERS Safety Report 7424781-8 (Version None)
Quarter: 2011Q2

REPORT INFORMATION
  Report Type: 
  Country: None (occurrence: None)
  Receive Date: 20110419
  Receipt Date: 20100716
  Transmission Date: 20111010
  Serious: No
  Sender: FDA-Public Use
  Company Number: US-ABBOTT-10P-163-0658945-00

PATIENT
  Sex: Female
  Weight: 42.5 kg

DRUGS (2)
  1. LUPRON DEPOT-PED [Suspect]
     Indication: PRECOCIOUS PUBERTY
     Dates: start: 20100516, end: 20100701
  2. LUPRON DEPOT-PED [Suspect]
     Dosage: ADULT DOSE
     Dates: start: 20100701

REACTIONS (2)
  - TOOTH DISCOLOURATION [None]
  - DRUG DISPENSING ERROR [None]
